FAERS Safety Report 4310398-0 (Version None)
Quarter: 2004Q1

REPORT INFORMATION
  Report Type: 
  Country: None (occurrence: None)
  Receive Date: 20040301
  Receipt Date: 20031113
  Transmission Date: 20041129
  Serious: No
  Sender: FDA-Public Use
  Company Number: WAES 0311USA01533

PATIENT
  Age: 66 Year
  Sex: Male

DRUGS (12)
  1. ZETIA [Suspect]
     Indication: BLOOD CHOLESTEROL INCREASED
     Dosage: 10 MG/HS/PO
     Route: 048
     Dates: start: 20031028
  2. AVAPRO [Concomitant]
  3. KLONOPIN [Concomitant]
  4. NITROSTAT [Concomitant]
  5. REMERON [Concomitant]
  6. WELCHOL [Concomitant]
  7. ACETAZOLAMIDE [Concomitant]
  8. ASPIRIN [Concomitant]
  9. ATENOLOL [Concomitant]
  10. ISOSORBIDE [Concomitant]
  11. VITAMINS (UNSPECIFIED) [Concomitant]
  12. WARFARIN SODIUM [Concomitant]

REACTIONS (3)
  - DRY MOUTH [None]
  - DRY THROAT [None]
  - PRURITUS [None]
